FAERS Safety Report 5794516-3 (Version None)
Quarter: 2008Q2

REPORT INFORMATION
  Report Type: 
  Country: None (occurrence: None)
  Receive Date: 20080625
  Receipt Date: 20080617
  Transmission Date: 20081010
  Serious: Yes (Other)
  Sender: FDA-Public Use
  Company Number: 056-20785-08061156

PATIENT
  Age: 43 Year
  Sex: Male

DRUGS (1)
  1. THALIDOMIDE [Suspect]
     Indication: CUTANEOUS LUPUS ERYTHEMATOSUS
     Dosage: 100-50 MG, DAILY X3 TIMES PER WEEK;

REACTIONS (2)
  - ASPERGILLOSIS [None]
  - INTERVERTEBRAL DISCITIS [None]
